FAERS Safety Report 4613268-3 (Version None)
Quarter: 2005Q1

REPORT INFORMATION
  Report Type: 
  Country: None (occurrence: None)
  Receive Date: 20050315
  Receipt Date: 20050301
  Transmission Date: 20050727
  Serious: Yes (Hospitalization)
  Sender: FDA-Public Use
  Company Number: A02200500549

PATIENT
  Age: 40 Year
  Sex: Female

DRUGS (10)
  1. STILNOX - (ZOLPIDEM) - TABLET - 10 MG [Suspect]
     Dosage: ORAL
     Route: 048
     Dates: start: 20041230, end: 20050121
  2. FUROSEMIDE [Suspect]
     Indication: RENAL FAILURE CHRONIC
     Dosage: ORAL
     Route: 048
     Dates: start: 20050104, end: 20050121
  3. PREVISCAN - (FLUINDIONE) - TABLET - 20 MG [Suspect]
     Dosage: ORAL
     Route: 048
     Dates: start: 20041230, end: 20050121
  4. PRAVASTATIN SODIUM [Suspect]
     Dosage: ORAL
     Route: 048
     Dates: start: 20050104, end: 20050121
  5. TENORMIN [Suspect]
     Dosage: ORAL
     Route: 048
     Dates: start: 20041212, end: 20050121
  6. NEORECORMON - (EPOETIN BETA) - SOLUTION - 2000 UNIT [Suspect]
     Dosage: SUBCUTANEOUS
     Route: 058
     Dates: start: 20050117, end: 20050117
  7. LOPRIL - (CAPTOPRIL) - TABLET - 25 MG [Suspect]
     Dosage: ORAL
     Route: 048
     Dates: start: 20041219, end: 20050121
  8. PULMICORT - (BUDESONIDE) - SOLUTION [Suspect]
     Dosage: RESPIRATORY (INHALATION)
     Route: 055
     Dates: end: 20050121
  9. DOLIPRANE - (PARACETAMOL) [Suspect]
     Dosage: ORAL
     Route: 048
     Dates: start: 20050103, end: 20050121
  10. FERROUS SULFATE TAB [Suspect]
     Dosage: ORAL
     Route: 048
     Dates: start: 20050110, end: 20050121

REACTIONS (2)
  - AGRANULOCYTOSIS [None]
  - LARYNGEAL DYSPNOEA [None]
